FAERS Safety Report 8596409-5 (Version None)
Quarter: 2012Q3

REPORT INFORMATION
  Report Type: 
  Country: None (occurrence: None)
  Receive Date: 20120815
  Receipt Date: 20120813
  Transmission Date: 20120928
  Serious: Yes (Death)
  Sender: FDA-Public Use
  Company Number: US-CELGENEUS-163-21880-12062514

PATIENT
  Sex: Female

DRUGS (13)
  1. RITUXAN [Concomitant]
     Indication: LYMPHOMA
     Route: 041
     Dates: start: 20021101, end: 20110801
  2. METOPROLOL TARTRATE [Concomitant]
     Dosage: 25 MILLIGRAM
     Route: 065
  3. VICODIN [Concomitant]
     Dosage: 5/500
     Route: 065
  4. IMODIUM [Concomitant]
     Route: 065
  5. REVLIMID [Suspect]
     Indication: LYMPHOMA
     Dosage: 20 MILLIGRAM
     Route: 048
     Dates: start: 20111125, end: 20120320
  6. POTASSIUM [Concomitant]
     Dosage: 20 MILLIEQUIVALENTS
     Route: 048
  7. SIMVASTATIN [Concomitant]
     Dosage: 20 MILLIGRAM
     Route: 065
  8. FERROUS SULFATE TAB [Concomitant]
     Dosage: 325 MILLIGRAM
     Route: 065
  9. ACYCLOVIR [Concomitant]
     Indication: PROPHYLAXIS
     Dosage: 800 MILLIGRAM
     Route: 048
  10. BENDAMUSTINE HYDROCHLORIDE [Concomitant]
     Indication: LYMPHOMA
     Route: 041
     Dates: start: 20110401, end: 20110801
  11. VELCADE [Concomitant]
     Indication: LYMPHOMA
     Route: 041
     Dates: start: 20110801, end: 20120101
  12. OMEPRAZOLE [Concomitant]
     Dosage: 40 MILLIGRAM
     Route: 065
  13. LEVOTHYROXINE SODIUM [Concomitant]
     Indication: HYPOTHYROIDISM
     Dosage: 88 MICROGRAM
     Route: 048

REACTIONS (1)
  - DIFFUSE LARGE B-CELL LYMPHOMA [None]
